FAERS Safety Report 20492657 (Version 1)
Quarter: 2022Q1

REPORT INFORMATION
  Report Type: Spontaneous
  Country: US (occurrence: US)
  Receive Date: 20220219
  Receipt Date: 20220219
  Transmission Date: 20220423
  Serious: No
  Sender: FDA-Public Use
  Company Number: US-HETERO-HET2022US00421

PATIENT

DRUGS (1)
  1. RITONAVIR [Suspect]
     Active Substance: RITONAVIR
     Indication: COVID-19
     Dosage: FULL COURSE EVERY 12 HOURS MORNING AND NIGHT, TWO PINK AND ONE WHITE
     Route: 065
     Dates: start: 20220201

REACTIONS (4)
  - Tremor [Recovering/Resolving]
  - Inflammation [Unknown]
  - Muscle spasms [Unknown]
  - Pruritus [Recovered/Resolved]

NARRATIVE: CASE EVENT DATE: 20220201
